FAERS Safety Report 21530048 (Version 1)
Quarter: 2022Q4

REPORT INFORMATION
  Report Type: Report from Study
  Country: US (occurrence: US)
  Receive Date: 20221031
  Receipt Date: 20221031
  Transmission Date: 20230113
  Serious: No
  Sender: FDA-Public Use
  Company Number: US-ABBVIE-4148312

PATIENT
  Sex: Female
  Weight: 54.431 kg

DRUGS (1)
  1. RINVOQ [Suspect]
     Active Substance: UPADACITINIB
     Indication: Rheumatoid arthritis
     Dosage: FORM STRENGTH 15 MILLIGRAM?START DATE TEXT ALMOST 2 YEARS
     Route: 048

REACTIONS (2)
  - Peripheral swelling [Unknown]
  - Laboratory test abnormal [Not Recovered/Not Resolved]
